FAERS Safety Report 8157255-X (Version None)
Quarter: 2012Q1

REPORT INFORMATION
  Report Type: 
  Country: None (occurrence: None)
  Receive Date: 20120222
  Receipt Date: 20120214
  Transmission Date: 20120608
  Serious: Yes (Hospitalization)
  Sender: FDA-Public Use
  Company Number: DE-JNJFOC-20120207999

PATIENT
  Sex: Male
  Weight: 71 kg

DRUGS (3)
  1. ADALIMUMAB [Concomitant]
     Indication: CROHN'S DISEASE
     Dates: start: 20090406
  2. REMICADE [Suspect]
     Indication: CROHN'S DISEASE
     Route: 042
     Dates: start: 20090226
  3. REMICADE [Suspect]
     Route: 042
     Dates: start: 20070322

REACTIONS (1)
  - THYROID NEOPLASM [None]
